FAERS Safety Report 14425257 (Version 1)
Quarter: 2018Q1

REPORT INFORMATION
  Report Type: Spontaneous
  Country: NL (occurrence: NL)
  Receive Date: 20180123
  Receipt Date: 20180123
  Transmission Date: 20180509
  Serious: Yes (Other)
  Sender: FDA-Public Use
  Company Number: NL-ABBVIE-18P-114-2231376-00

PATIENT
  Sex: Male

DRUGS (1)
  1. DEPAKINE CHRONO [Suspect]
     Active Substance: VALPROATE SODIUM
     Indication: MATERNAL EXPOSURE TIMING UNSPECIFIED
     Route: 064

REACTIONS (5)
  - Speech disorder developmental [Unknown]
  - Autism spectrum disorder [Unknown]
  - Intellectual disability [Unknown]
  - Attention deficit/hyperactivity disorder [Unknown]
  - Foetal exposure during pregnancy [Unknown]
